FAERS Safety Report 18072858 (Version 1)
Quarter: 2020Q3

REPORT INFORMATION
  Report Type: Spontaneous
  Country: US (occurrence: US)
  Receive Date: 20200725
  Receipt Date: 20200725
  Transmission Date: 20201103
  Serious: Yes (Disabling)
  Sender: FDA-Public Use
  Company Number: None

PATIENT
  Age: 26 Month
  Sex: Male
  Weight: 94.5 kg

DRUGS (1)
  1. DULOXETINE DR 60MG CAPSULES [Suspect]
     Active Substance: DULOXETINE
     Indication: ACCIDENT
     Dosage: ?          QUANTITY:1 CAPSULE(S);?
     Route: 048
     Dates: start: 20200724, end: 20200725

REACTIONS (4)
  - Nausea [None]
  - Dysstasia [None]
  - Muscle spasms [None]
  - Abdominal pain upper [None]

NARRATIVE: CASE EVENT DATE: 20200725
